FAERS Safety Report 15715065 (Version 1)
Quarter: 2018Q4

REPORT INFORMATION
  Report Type: Spontaneous
  Country: US (occurrence: US)
  Receive Date: 20181212
  Receipt Date: 20181212
  Transmission Date: 20190205
  Serious: No
  Sender: FDA-Public Use
  Company Number: US-ENDO PHARMACEUTICALS INC-2018-012609

PATIENT
  Age: 72 Year
  Sex: Male
  Weight: 79.37 kg

DRUGS (2)
  1. TESTIM [Suspect]
     Active Substance: TESTOSTERONE
     Dosage: ONE TUBE, 50 MG, TO SHOULDERS TWICE DAILY
     Route: 062
     Dates: start: 201711
  2. TESTIM [Suspect]
     Active Substance: TESTOSTERONE
     Indication: HYPOGONADISM
     Dosage: ONE TUBE, 50 MG, TO SHOULDERS ONCE DAILY
     Route: 062
     Dates: start: 201710, end: 201711

REACTIONS (2)
  - Blood testosterone decreased [Not Recovered/Not Resolved]
  - Inappropriate schedule of product administration [Not Recovered/Not Resolved]

NARRATIVE: CASE EVENT DATE: 201711
